FAERS Safety Report 15493088 (Version 1)
Quarter: 2018Q4

REPORT INFORMATION
  Report Type: Spontaneous
  Country: US (occurrence: US)
  Receive Date: 20181012
  Receipt Date: 20181012
  Transmission Date: 20190205
  Serious: No
  Sender: FDA-Public Use
  Company Number: US-SA-2018SA280509

PATIENT
  Sex: Female

DRUGS (1)
  1. CAPRELSA [Suspect]
     Active Substance: VANDETANIB
     Dosage: UNK
     Route: 048
     Dates: start: 2014

REACTIONS (2)
  - Rash [Unknown]
  - Discomfort [Unknown]
